FAERS Safety Report 24645104 (Version 1)
Quarter: 2024Q4

REPORT INFORMATION
  Report Type: Spontaneous
  Country: US (occurrence: US)
  Receive Date: 20241121
  Receipt Date: 20241121
  Transmission Date: 20250114
  Serious: No
  Sender: BRISTOL-MYERS SQUIBB COMPANY
  Company Number: US-BRISTOL-MYERS SQUIBB COMPANY-2024-182079

PATIENT
  Age: 69 Year
  Sex: Male
  Weight: 82.1 kg

DRUGS (1)
  1. THALOMID [Suspect]
     Active Substance: THALIDOMIDE
     Indication: Plasma cell myeloma
     Dosage: FREQ- AT BEDTIME
     Route: 048

REACTIONS (1)
  - Peripheral swelling [Not Recovered/Not Resolved]
